FAERS Safety Report 9507577 (Version 2)
Quarter: 2013Q4

REPORT INFORMATION
  Report Type: Spontaneous
  Country: US (occurrence: US)
  Receive Date: 20130909
  Receipt Date: 20131001
  Transmission Date: 20140711
  Serious: Yes (Death)
  Sender: FDA-Public Use
  Company Number: US-CELGENEUS-163-21660-13090272

PATIENT
  Age: 73 Year
  Sex: Male

DRUGS (22)
  1. ABRAXANE [Suspect]
     Indication: PANCREATIC CARCINOMA
     Route: 041
     Dates: start: 20130726, end: 20130726
  2. NORMAL SALINE [Concomitant]
     Indication: PRODUCT USED FOR UNKNOWN INDICATION
     Dosage: 500
     Route: 041
  3. ALOXI [Concomitant]
     Indication: PRODUCT USED FOR UNKNOWN INDICATION
     Route: 041
  4. DECADRON [Concomitant]
     Indication: PRODUCT USED FOR UNKNOWN INDICATION
     Route: 041
  5. GEMZAR [Concomitant]
     Indication: PRODUCT USED FOR UNKNOWN INDICATION
     Route: 041
  6. HEPARIN [Concomitant]
     Indication: PRODUCT USED FOR UNKNOWN INDICATION
     Dosage: 500 UNITS
     Route: 041
  7. CIPROFLOXACIN [Concomitant]
     Indication: PRODUCT USED FOR UNKNOWN INDICATION
     Dosage: 1000 MILLIGRAM
     Route: 048
  8. ATIVAN [Concomitant]
     Indication: PRODUCT USED FOR UNKNOWN INDICATION
     Dosage: 2 MILLIGRAM
     Route: 048
  9. LUNESTA [Concomitant]
     Indication: INSOMNIA
     Dosage: 1-2 TABS
     Route: 048
  10. PAXIL [Concomitant]
     Indication: PRODUCT USED FOR UNKNOWN INDICATION
     Dosage: 20 MILLIGRAM
     Route: 048
  11. IMODIUM A-D [Concomitant]
     Indication: PRODUCT USED FOR UNKNOWN INDICATION
     Dosage: 8 MILLIGRAM
     Route: 048
  12. CREON [Concomitant]
     Indication: PRODUCT USED FOR UNKNOWN INDICATION
     Dosage: 60 - 12 - 38
     Route: 048
  13. AMBIEN [Concomitant]
     Indication: INSOMNIA
     Dosage: 5 MILLIGRAM
     Route: 048
  14. ZOFRAN [Concomitant]
     Indication: NAUSEA
     Dosage: 24 MILLIGRAM
     Route: 048
  15. ZOFRAN [Concomitant]
     Indication: VOMITING
  16. COMPAZINE [Concomitant]
     Indication: NAUSEA
     Dosage: 40 MILLIGRAM
     Route: 048
  17. COMPAZINE [Concomitant]
     Indication: VOMITING
  18. METOPROLOL SUCCINATE [Concomitant]
     Indication: PRODUCT USED FOR UNKNOWN INDICATION
     Dosage: 300 MILLIGRAM
     Route: 048
  19. LANOXIN [Concomitant]
     Indication: PRODUCT USED FOR UNKNOWN INDICATION
     Dosage: 250 MICROGRAM
     Route: 048
  20. COUMADIN [Concomitant]
     Indication: PRODUCT USED FOR UNKNOWN INDICATION
     Dosage: 2.5 MILLIGRAM
     Route: 048
  21. LEVOTHYROXINE [Concomitant]
     Indication: PRODUCT USED FOR UNKNOWN INDICATION
     Dosage: 137 MICROGRAM
     Route: 048
  22. LORTAB [Concomitant]
     Indication: PRODUCT USED FOR UNKNOWN INDICATION
     Dosage: 5-500 MG
     Route: 048

REACTIONS (1)
  - Pancreatic carcinoma [Fatal]
